FAERS Safety Report 5161171-5 (Version None)
Quarter: 2006Q4

REPORT INFORMATION
  Report Type: 
  Country: None (occurrence: None)
  Receive Date: 20061130
  Receipt Date: 20060518
  Transmission Date: 20070319
  Serious: No
  Sender: FDA-Public Use
  Company Number: US-BRISTOL-MYERS SQUIBB COMPANY-13381397

PATIENT
  Age: 55 Year
  Sex: Male

DRUGS (19)
  1. ERBITUX [Suspect]
     Indication: TONSIL CANCER
     Route: 042
     Dates: start: 20060328
  2. MINOCYCLINE HCL [Concomitant]
  3. LISINOPRIL [Concomitant]
  4. METFORMIN HCL [Concomitant]
  5. DAPSONE [Concomitant]
  6. TRAZODONE HCL [Concomitant]
  7. OXYCONTIN [Concomitant]
  8. ATIVAN [Concomitant]
  9. CALCIUM [Concomitant]
  10. ROXICET [Concomitant]
  11. FOSAMPRENAVIR CALCIUM [Concomitant]
  12. TRUVADA [Concomitant]
  13. SUSTIVA [Concomitant]
  14. MIRALAX [Concomitant]
  15. ENDOCET [Concomitant]
  16. RADIATION THERAPY [Concomitant]
  17. PROCRIT [Concomitant]
     Route: 058
  18. BENADRYL [Concomitant]
     Route: 042
  19. TYLENOL [Concomitant]
     Route: 048

REACTIONS (1)
  - THROMBOCYTOPENIA [None]
